FAERS Safety Report 7039650-5 (Version None)
Quarter: 2010Q4

REPORT INFORMATION
  Report Type: 
  Country: None (occurrence: None)
  Receive Date: 20101012
  Receipt Date: 20101006
  Transmission Date: 20110411
  Serious: Yes (Hospitalization)
  Sender: FDA-Public Use
  Company Number: A0885916A

PATIENT
  Age: 61 Year
  Sex: Female

DRUGS (1)
  1. AVANDIA [Suspect]
     Dosage: 4MG PER DAY
     Route: 048
     Dates: start: 20040101, end: 20080915

REACTIONS (3)
  - ARTERIAL THERAPEUTIC PROCEDURE [None]
  - EYE DISORDER [None]
  - TRANSIENT ISCHAEMIC ATTACK [None]
